FAERS Safety Report 4289739-9 (Version None)
Quarter: 2004Q1

REPORT INFORMATION
  Report Type: 
  Country: None (occurrence: None)
  Receive Date: 20040206
  Receipt Date: 20031015
  Transmission Date: 20041129
  Serious: Yes (Hospitalization)
  Sender: FDA-Public Use
  Company Number: HQWYE286916OCT03

PATIENT
  Age: 19 Year
  Sex: Female
  Weight: 63.56 kg

DRUGS (1)
  1. NORPLANT SYSTEM [Suspect]
     Indication: CONTRACEPTION
     Dosage: 6 CAPSULES, SUBCUTANEOUS
     Route: 058
     Dates: start: 20000526

REACTIONS (2)
  - OLIGOMENORRHOEA [None]
  - OVARIAN CYST [None]
